FAERS Safety Report 9261770 (Version 1)
Quarter: 2013Q2

REPORT INFORMATION
  Report Type: Spontaneous
  Country: DE (occurrence: DE)
  Receive Date: 20130429
  Receipt Date: 20130429
  Transmission Date: 20140414
  Serious: Yes (Other)
  Sender: FDA-Public Use
  Company Number: DE-ELI_LILLY_AND_COMPANY-DE201304005269

PATIENT
  Age: 78 Year
  Sex: Female

DRUGS (3)
  1. FORSTEO [Suspect]
     Indication: OSTEOPOROSIS
     Dosage: UNK, UNKNOWN
     Route: 058
     Dates: start: 201210
  2. MARCUMAR [Concomitant]
     Dosage: UNK, UNKNOWN
  3. NOVAMINSULFON [Concomitant]
     Dosage: UNK, PRN

REACTIONS (1)
  - Age-related macular degeneration [Not Recovered/Not Resolved]
